FAERS Safety Report 6746320-7 (Version None)
Quarter: 2010Q2

REPORT INFORMATION
  Report Type: 
  Country: None (occurrence: None)
  Receive Date: 20100528
  Receipt Date: 20100517
  Transmission Date: 20101027
  Serious: Yes (Other)
  Sender: FDA-Public Use
  Company Number: US-PFIZER INC-2010062547

PATIENT
  Sex: Male
  Weight: 79 kg

DRUGS (6)
  1. TIKOSYN [Suspect]
     Indication: ATRIAL FIBRILLATION
     Dosage: 500 UG, 2X/DAY
     Route: 048
     Dates: start: 20100511
  2. CUMADIN [Concomitant]
     Indication: ANTICOAGULANT THERAPY
     Dosage: 5 MG, DAILY
  3. COLESTIPOL [Concomitant]
     Indication: BLOOD CHOLESTEROL INCREASED
     Dosage: 1 MG, 2X/DAY
  4. LISINOPRIL [Concomitant]
     Indication: HYPERTENSION
     Dosage: 10 MG, DAILY
  5. METOPROLOL [Concomitant]
     Indication: HEART RATE ABNORMAL
     Dosage: 25 MG, 2X/DAY
  6. OMEPRAZOLE [Concomitant]
     Dosage: 20 MG, DAILY

REACTIONS (3)
  - BLOOD POTASSIUM DECREASED [None]
  - DRUG DISPENSING ERROR [None]
  - ELECTROCARDIOGRAM QT PROLONGED [None]
